FAERS Safety Report 7027632-9 (Version None)
Quarter: 2010Q4

REPORT INFORMATION
  Report Type: 
  Country: None (occurrence: None)
  Receive Date: 20101004
  Receipt Date: 20100921
  Transmission Date: 20110411
  Serious: Yes (Death)
  Sender: FDA-Public Use
  Company Number: SE-WATSON-2010-12966

PATIENT
  Age: 23 Year
  Sex: Male

DRUGS (6)
  1. MIRTAZAPINE [Suspect]
     Indication: PRODUCT USED FOR UNKNOWN INDICATION
     Dosage: UNK
  2. DIAZEPAM [Suspect]
     Indication: PRODUCT USED FOR UNKNOWN INDICATION
  3. PARACETAMOL [Suspect]
     Indication: PRODUCT USED FOR UNKNOWN INDICATION
     Dosage: UNK
  4. GAMMA-HYDROXYBUTYRATE [Suspect]
     Indication: DRUG ABUSE
     Dosage: UNK
  5. COCAINE [Suspect]
     Indication: DRUG ABUSE
     Dosage: UNK
  6. AMPHETAMINE AND DEXTROAMPHETAMINE SALTS [Suspect]
     Indication: DRUG ABUSE
     Dosage: UNK

REACTIONS (1)
  - OVERDOSE [None]
